FAERS Safety Report 8801670 (Version 2)
Quarter: 2015Q2

REPORT INFORMATION
  Report Type: Report from Study
  Country: US (occurrence: US)
  Receive Date: 20120921
  Receipt Date: 20150618
  Transmission Date: 20150821
  Serious: Yes (Death)
  Sender: FDA-Public Use
  Company Number: US-ROCHE-1125793

PATIENT
  Sex: Female

DRUGS (14)
  1. POTASSIUM CHLORIDE. [Concomitant]
     Active Substance: POTASSIUM CHLORIDE
     Route: 048
  2. NEURONTIN [Concomitant]
     Active Substance: GABAPENTIN
     Route: 048
  3. AVASTIN [Suspect]
     Active Substance: BEVACIZUMAB
     Indication: BRAIN NEOPLASM MALIGNANT
     Route: 042
     Dates: start: 20051009
  4. TEMODAR [Suspect]
     Active Substance: TEMOZOLOMIDE
     Indication: PRODUCT USED FOR UNKNOWN INDICATION
     Dosage: START DATE  NOV/2005  AND STOP DATE JUL/2006
     Route: 065
  5. DILANTIN [Concomitant]
     Active Substance: PHENYTOIN
     Route: 048
  6. ATENOLOL HYDROCHLORIDE [Concomitant]
     Dosage: 50/25 MG
     Route: 048
  7. LORAZEPAM. [Concomitant]
     Active Substance: LORAZEPAM
     Indication: ANXIETY
     Route: 048
  8. DILANTIN [Concomitant]
     Active Substance: PHENYTOIN
     Route: 048
  9. KEPPRA [Concomitant]
     Active Substance: LEVETIRACETAM
     Route: 065
  10. DILANTIN [Concomitant]
     Active Substance: PHENYTOIN
     Route: 048
  11. DECADRON [Concomitant]
     Active Substance: DEXAMETHASONE
     Route: 065
  12. LORAZEPAM. [Concomitant]
     Active Substance: LORAZEPAM
     Indication: SEIZURE
  13. CLINDAMYCIN [Concomitant]
     Active Substance: CLINDAMYCIN\CLINDAMYCIN PHOSPHATE
     Route: 065
  14. CHONDROITIN [Concomitant]
     Active Substance: CHONDROITIN
     Dosage: 2 TABLETS DAILY
     Route: 065

REACTIONS (2)
  - Disease progression [Unknown]
  - Death [Fatal]
